FAERS Safety Report 14207336 (Version 1)
Quarter: 2017Q4

REPORT INFORMATION
  Report Type: Spontaneous
  Country: US (occurrence: None)
  Receive Date: 20171120
  Receipt Date: 20171120
  Transmission Date: 20180321
  Serious: Yes (Hospitalization)
  Sender: FDA-Public Use
  Company Number: None

PATIENT
  Age: 53 Year
  Sex: Male

DRUGS (1)
  1. CHLORTHALIDONE. [Suspect]
     Active Substance: CHLORTHALIDONE
     Indication: CARDIAC FAILURE CONGESTIVE
     Route: 048
     Dates: start: 20170710, end: 20170714

REACTIONS (6)
  - Constipation [None]
  - Irritable bowel syndrome [None]
  - Hyponatraemia [None]
  - Diarrhoea [None]
  - Myalgia [None]
  - Abdominal pain [None]

NARRATIVE: CASE EVENT DATE: 20170719
